FAERS Safety Report 11809807 (Version 1)
Quarter: 2015Q4

REPORT INFORMATION
  Report Type: Spontaneous
  Country: US (occurrence: None)
  Receive Date: 20151207
  Receipt Date: 20151207
  Transmission Date: 20160305
  Serious: No
  Sender: FDA-Public Use
  Company Number: None

PATIENT
  Sex: Male

DRUGS (1)
  1. ALPROLIX [Suspect]
     Active Substance: EFTRENONACOG ALFA
     Indication: FACTOR IX DEFICIENCY
     Dosage: Q5D FOR PROPHY AND DAILY PM
     Route: 042
     Dates: end: 20151201

REACTIONS (3)
  - Vomiting [None]
  - Drug hypersensitivity [None]
  - Erythema [None]
